FAERS Safety Report 4963197-0 (Version None)
Quarter: 2006Q2

REPORT INFORMATION
  Report Type: 
  Country: None (occurrence: None)
  Receive Date: 20060405
  Receipt Date: 20060324
  Transmission Date: 20061013
  Serious: Yes (Hospitalization)
  Sender: FDA-Public Use
  Company Number: US-MERCK-0603USA04305

PATIENT
  Age: 71 Year
  Sex: Male
  Weight: 104 kg

DRUGS (1)
  1. VIOXX [Suspect]
     Indication: ARTHRITIS
     Route: 048
     Dates: start: 20010801, end: 20040529

REACTIONS (3)
  - ARTHRITIS [None]
  - CEREBROVASCULAR ACCIDENT [None]
  - HYPERTENSION [None]
